FAERS Safety Report 8245088 (Version 6)
Quarter: 2013Q3

REPORT INFORMATION
  Report Type: Report from Study
  Country: FR (occurrence: FR)
  Receive Date: 20111115
  Receipt Date: 20130702
  Transmission Date: 20140515
  Serious: Yes (Life-Threatening)
  Sender: FDA-Public Use
  Company Number: FR-CELGENEUS-056-C5013-11111401

PATIENT
  Age: 80 Year
  Sex: Male
  Weight: 76.2 kg

DRUGS (12)
  1. CC-5013 [Suspect]
     Indication: PLASMA CELL MYELOMA
     Dosage: 25 MILLIGRAM
     Route: 048
     Dates: start: 20090120
  2. CC-5013 [Suspect]
     Dosage: 15 MILLIGRAM
     Route: 048
     Dates: start: 20111014, end: 20111020
  3. CC-5013 [Suspect]
     Route: 048
     Dates: end: 20111102
  4. DEXAMETHASONE [Suspect]
     Indication: PLASMA CELL MYELOMA
     Dosage: 20 MILLIGRAM
     Route: 065
     Dates: start: 20090120
  5. DEXAMETHASONE [Suspect]
     Dosage: 20 MILLIGRAM
     Route: 065
     Dates: start: 20111014, end: 20111102
  6. LANSOYL [Concomitant]
     Indication: PRODUCT USED FOR UNKNOWN INDICATION
     Route: 048
     Dates: start: 20110915
  7. FORLAX [Concomitant]
     Indication: PRODUCT USED FOR UNKNOWN INDICATION
     Route: 048
     Dates: start: 20090217
  8. DOMPERIDONE [Concomitant]
     Indication: PRODUCT USED FOR UNKNOWN INDICATION
     Route: 048
     Dates: start: 20090217
  9. OMEPRAZOLE [Concomitant]
     Indication: PRODUCT USED FOR UNKNOWN INDICATION
     Dosage: 20 MILLIGRAM
     Route: 048
  10. ASPEGIC [Concomitant]
     Indication: THROMBOSIS PROPHYLAXIS
     Dosage: 100 MILLIGRAM
     Route: 048
     Dates: start: 20091014
  11. BLOOD [Concomitant]
     Indication: ACUTE LEUKAEMIA
     Route: 041
     Dates: start: 20120117
  12. BLOOD [Concomitant]
     Dosage: UNITS
     Route: 065
     Dates: start: 20130514, end: 20130514

REACTIONS (1)
  - Acute myeloid leukaemia [Not Recovered/Not Resolved]
